FAERS Safety Report 24166892 (Version 1)
Quarter: 2024Q3

REPORT INFORMATION
  Report Type: Spontaneous
  Country: US (occurrence: US)
  Receive Date: 20240802
  Receipt Date: 20240802
  Transmission Date: 20241017
  Serious: Yes (Hospitalization, Other)
  Sender: OXFORD PHARMACEUTICALS
  Company Number: US-Oxford Pharmaceuticals, LLC-2159919

PATIENT
  Age: 86 Year
  Sex: Female

DRUGS (1)
  1. LEVETIRACETAM [Suspect]
     Active Substance: LEVETIRACETAM
     Indication: Seizure

REACTIONS (5)
  - Psychomotor hyperactivity [Recovered/Resolved]
  - Aggression [Unknown]
  - Tardive dyskinesia [Unknown]
  - Delusion [Unknown]
  - Hallucination [Unknown]
